FAERS Safety Report 5083461-7 (Version None)
Quarter: 2006Q3

REPORT INFORMATION
  Report Type: 
  Country: None (occurrence: None)
  Receive Date: 20060720
  Receipt Date: 20050610
  Transmission Date: 20061208
  Serious: Yes (Other)
  Sender: FDA-Public Use
  Company Number: 2003158540US

PATIENT
  Sex: Female
  Weight: 87.5442 kg

DRUGS (16)
  1. CELEBREX [Suspect]
     Indication: ILL-DEFINED DISORDER
     Dosage: 200 MG (200 MG, 1 IN 1 D), ORAL
     Route: 048
     Dates: start: 19991013, end: 20020419
  2. MICROZIDE [Concomitant]
  3. HYDROCODONE (HYDROCODONE) [Concomitant]
  4. PREDNISONE TAB [Concomitant]
  5. GERITOL (VITAMINS NOS) [Concomitant]
  6. HEMOCYTE TABLET (FERROUS FUMARATE) [Concomitant]
  7. CALCIUM (CALCIUM) [Concomitant]
  8. SERZONE [Concomitant]
  9. CLARITIN-D [Concomitant]
  10. POTASSIUM CHLORIDE [Concomitant]
  11. AZMACORT [Concomitant]
  12. XOPENEX [Concomitant]
  13. PREVACID [Concomitant]
  14. MONTELUKAST (MONTELUKAST) [Concomitant]
  15. CYCLOBENZAPRINE HCL [Concomitant]
  16. NORVASC [Concomitant]

REACTIONS (4)
  - ARRHYTHMIA [None]
  - BLOOD PRESSURE INCREASED [None]
  - GASTROINTESTINAL ULCER HAEMORRHAGE [None]
  - OEDEMA [None]
